FAERS Safety Report 8220016-7 (Version None)
Quarter: 2012Q1

REPORT INFORMATION
  Report Type: 
  Country: None (occurrence: None)
  Receive Date: 20120320
  Receipt Date: 20120310
  Transmission Date: 20120608
  Serious: Yes (Death, Hospitalization)
  Sender: FDA-Public Use
  Company Number: US-BRISTOL-MYERS SQUIBB COMPANY-16088510

PATIENT
  Age: 50 Year
  Sex: Male
  Weight: 118 kg

DRUGS (1)
  1. IPILIMUMAB [Suspect]
     Indication: MALIGNANT MELANOMA
     Dosage: NO OF COURSES:2,10MG/KG OVER 90 MIN ON DAY1,10 MG/KG OVER 90 MIN ON DAY1 Q12 WEEKS,LASTDOSE:23AUG11
     Route: 042
     Dates: start: 20110802, end: 20110823

REACTIONS (1)
  - SEPSIS [None]
